FAERS Safety Report 5209112-6 (Version None)
Quarter: 2007Q1

REPORT INFORMATION
  Report Type: 
  Country: None (occurrence: None)
  Receive Date: 20070116
  Receipt Date: 20070110
  Transmission Date: 20070707
  Serious: Yes (Hospitalization)
  Sender: FDA-Public Use
  Company Number: BR-AVENTIS-200710089GDDC

PATIENT
  Age: 16 Year
  Sex: Female
  Weight: 65 kg

DRUGS (5)
  1. LANTUS [Suspect]
     Dosage: DOSE: 38 AM + PM
     Route: 058
  2. LANTUS [Suspect]
     Dosage: DOSE: 38 AM + PM
     Route: 058
  3. OPTIPEN (INSULIN PUMP) [Suspect]
  4. HUMALOG [Concomitant]
  5. METFORMIN [Concomitant]
     Dosage: DOSE: 1 AM + PM
     Route: 048

REACTIONS (9)
  - AMNESIA [None]
  - BLOOD GLUCOSE FLUCTUATION [None]
  - CONVULSION [None]
  - HYPERGLYCAEMIA [None]
  - HYPOGLYCAEMIA [None]
  - HYPOGLYCAEMIC SEIZURE [None]
  - MOUTH HAEMORRHAGE [None]
  - TACHYCARDIA [None]
  - VOMITING [None]
